FAERS Safety Report 9900317 (Version 1)
Quarter: 2014Q1

REPORT INFORMATION
  Report Type: Spontaneous
  Country: US (occurrence: US)
  Receive Date: 20140216
  Receipt Date: 20140216
  Transmission Date: 20141002
  Serious: No
  Sender: FDA-Public Use
  Company Number: US-009507513-1402USA006794

PATIENT
  Sex: Female
  Weight: 73.47 kg

DRUGS (1)
  1. NEXPLANON [Suspect]
     Indication: CONTRACEPTION
     Dosage: 1 ROD UPTO 3 YEARS, IMPLANT RIGHT ARM
     Route: 059
     Dates: start: 20131122

REACTIONS (2)
  - Dizziness [Unknown]
  - Galactorrhoea [Unknown]
